FAERS Safety Report 9457511 (Version 1)
Quarter: 2013Q3

REPORT INFORMATION
  Report Type: Spontaneous
  Country: SE (occurrence: SE)
  Receive Date: 20130814
  Receipt Date: 20130814
  Transmission Date: 20140515
  Serious: Yes (Other)
  Sender: FDA-Public Use
  Company Number: SE-RANBAXY-2006US-01678

PATIENT
  Age: 14 Year
  Sex: Female
  Weight: 60 kg

DRUGS (2)
  1. ENALAPRIL [Suspect]
     Indication: HYPERTENSION
     Dosage: 5 MG/DAY
     Route: 064
  2. ENALAPRIL [Suspect]
     Indication: HYPERTENSION
     Dosage: 10MG/DAY
     Route: 064

REACTIONS (7)
  - Foetal exposure during pregnancy [Recovered/Resolved]
  - Proteinuria [Unknown]
  - Hyposthenuria [Unknown]
  - Glomerular filtration rate decreased [Unknown]
  - Renal tubular acidosis [Unknown]
  - Renal failure acute [Recovered/Resolved]
  - Anuria [Recovered/Resolved]
